FAERS Safety Report 13707191 (Version 2)
Quarter: 2017Q3

REPORT INFORMATION
  Report Type: Spontaneous
  Country: NL (occurrence: NL)
  Receive Date: 20170630
  Receipt Date: 20170821
  Transmission Date: 20171127
  Serious: Yes (Other)
  Sender: FDA-Public Use
  Company Number: NL-PFIZER INC-2017282082

PATIENT
  Age: 49 Year
  Sex: Female

DRUGS (4)
  1. CYCLOPHOSPHAMIDE. [Suspect]
     Active Substance: CYCLOPHOSPHAMIDE
     Indication: ADENOCARCINOMA
     Dosage: 2400 MG/M2, UNK
     Dates: start: 2007
  2. ADRIAMYCIN [Suspect]
     Active Substance: DOXORUBICIN HYDROCHLORIDE
     Indication: ADENOCARCINOMA
     Dosage: 240 MG/M2, UNK
     Dates: start: 2007
  3. TRASTUZUMAB. [Suspect]
     Active Substance: TRASTUZUMAB
     Indication: ADENOCARCINOMA
     Dosage: UNK
     Dates: start: 2007
  4. PACLITAXEL. [Suspect]
     Active Substance: PACLITAXEL
     Indication: ADENOCARCINOMA
     Dosage: 960 MG/M2, UNK
     Dates: start: 2007

REACTIONS (1)
  - Cardiomyopathy [Recovering/Resolving]
